FAERS Safety Report 8499772 (Version 8)
Quarter: 2015Q1

REPORT INFORMATION
  Report Type: Report from Study
  Country: NL (occurrence: NL)
  Receive Date: 20120409
  Receipt Date: 20150307
  Transmission Date: 20150721
  Serious: Yes (Death, Hospitalization, Other)
  Sender: FDA-Public Use
  Company Number: PHHO2012NL005251

PATIENT

DRUGS (3)
  1. ENALAPRIL [Suspect]
     Active Substance: ENALAPRIL
     Indication: CARDIAC FAILURE
     Dosage: UNK
     Route: 048
     Dates: start: 20110331, end: 20130503
  2. INDOMETHACIN. [Suspect]
     Active Substance: INDOMETHACIN
     Indication: GOUT
  3. METOPROLOL [Suspect]
     Active Substance: METOPROLOL
     Indication: CORONARY ARTERY DISEASE
     Dosage: 25 MG, UNK
     Dates: start: 20120220, end: 20120224

REACTIONS (8)
  - Cardiac failure [Fatal]
  - Microcytic anaemia [Fatal]
  - Myocardial infarction [Unknown]
  - Cardiac failure [Recovered/Resolved]
  - Cardiac failure [Recovered/Resolved]
  - Gastrointestinal disorder [Fatal]
  - Circulatory collapse [Recovered/Resolved]
  - Hypokalaemia [Fatal]

NARRATIVE: CASE EVENT DATE: 20120220
